APPROVED DRUG PRODUCT: CARDIZEM CD
Active Ingredient: DILTIAZEM HYDROCHLORIDE
Strength: 360MG
Dosage Form/Route: CAPSULE, EXTENDED RELEASE;ORAL
Application: N020062 | Product #005 | TE Code: AB3
Applicant: BAUSCH HEALTH US LLC
Approved: Aug 24, 1999 | RLD: Yes | RS: Yes | Type: RX